FAERS Safety Report 5483968-4 (Version None)
Quarter: 2007Q4

REPORT INFORMATION
  Report Type: 
  Country: None (occurrence: None)
  Receive Date: 20071010
  Receipt Date: 20071010
  Transmission Date: 20080405
  Serious: Yes (Hospitalization, Disabling, Other)
  Sender: FDA-Public Use
  Company Number: None

PATIENT
  Age: 25 Year
  Sex: Female
  Weight: 68.0396 kg

DRUGS (1)
  1. BENZOYL PEROXIDE WASH 1% GLADES PHARMACEUTICALS [Suspect]
     Indication: ACNE
     Dosage: WASH TWICE DAILY
     Dates: start: 20060706, end: 20061010

REACTIONS (4)
  - CONDITION AGGRAVATED [None]
  - FOLLICULITIS [None]
  - SCAR [None]
  - SKIN IRRITATION [None]
